FAERS Safety Report 10538958 (Version 1)
Quarter: 2014Q4

REPORT INFORMATION
  Report Type: Spontaneous
  Country: US (occurrence: US)
  Receive Date: 20141023
  Receipt Date: 20141023
  Transmission Date: 20150529
  Serious: Yes (Hospitalization, Other)
  Sender: FDA-Public Use
  Company Number: US-GLAXOSMITHKLINE-US2014008483

PATIENT
  Age: 50 Year
  Sex: Male

DRUGS (5)
  1. ADVAIR DISKUS [Suspect]
     Active Substance: FLUTICASONE PROPIONATE\SALMETEROL XINAFOATE
     Indication: DYSPNOEA
     Dosage: 250/50 UG
     Route: 055
  2. ALBUTEROL INHALER [Concomitant]
     Active Substance: ALBUTEROL
  3. FOLIC ACID. [Concomitant]
     Active Substance: FOLIC ACID
  4. ADVAIR DISKUS [Suspect]
     Active Substance: FLUTICASONE PROPIONATE\SALMETEROL XINAFOATE
     Indication: ASTHMA
  5. HYDROXYUREA. [Concomitant]
     Active Substance: HYDROXYUREA

REACTIONS (9)
  - Condition aggravated [Unknown]
  - Staphylococcal infection [Unknown]
  - Blister [Recovering/Resolving]
  - Osteomyelitis [Unknown]
  - Impaired healing [Unknown]
  - Knee arthroplasty [Unknown]
  - Knee operation [Unknown]
  - Leg amputation [Unknown]
  - Blister infected [Unknown]

NARRATIVE: CASE EVENT DATE: 201107
